FAERS Safety Report 9642229 (Version 1)
Quarter: 2013Q4

REPORT INFORMATION
  Report Type: Spontaneous
  Country: US (occurrence: US)
  Receive Date: 20131024
  Receipt Date: 20131024
  Transmission Date: 20140711
  Serious: Yes (Hospitalization)
  Sender: FDA-Public Use
  Company Number: US-AMGEN-USASP2013074475

PATIENT
  Age: 60 Year
  Sex: Male

DRUGS (4)
  1. NEULASTA [Suspect]
     Indication: PROPHYLAXIS
     Dosage: UNK
     Route: 065
  2. FLUDARABINE [Concomitant]
     Indication: LYMPHOMA
     Dosage: UNK
  3. MITOXANTRONE [Concomitant]
     Indication: LYMPHOMA
     Dosage: UNK
  4. RITUXIMAB [Concomitant]
     Indication: LYMPHOMA
     Dosage: UNK

REACTIONS (3)
  - Loss of consciousness [Unknown]
  - Blood pressure decreased [Unknown]
  - Heart rate decreased [Unknown]
